FAERS Safety Report 4733672-2 (Version None)
Quarter: 2005Q3

REPORT INFORMATION
  Report Type: 
  Country: None (occurrence: None)
  Receive Date: 20050729
  Receipt Date: 20050520
  Transmission Date: 20060218
  Serious: No
  Sender: FDA-Public Use
  Company Number: COT_0081_2005

PATIENT
  Age: 42 Year
  Sex: Male
  Weight: 60.6913 kg

DRUGS (8)
  1. VENTAVIS [Suspect]
     Indication: PULMONARY HYPERTENSION
     Dosage: 5 MCG Q3HR IH
     Route: 055
     Dates: start: 20050414
  2. VENTAVIS [Suspect]
  3. LORAZEPAM [Concomitant]
  4. HYDROCODONE [Concomitant]
  5. CLONIDINE [Concomitant]
  6. VIAGRA [Concomitant]
  7. MARINOL [Concomitant]
  8. PROMETHAZINE [Concomitant]

REACTIONS (2)
  - CANDIDIASIS [None]
  - RASH [None]
